FAERS Safety Report 9430807 (Version 1)
Quarter: 2013Q3

REPORT INFORMATION
  Report Type: Report from Study
  Country: US (occurrence: US)
  Receive Date: 20130730
  Receipt Date: 20130730
  Transmission Date: 20140515
  Serious: No
  Sender: FDA-Public Use
  Company Number: US-ABBOTT-13P-163-1103852-00

PATIENT
  Sex: Male

DRUGS (2)
  1. NIASPAN (COATED) [Suspect]
     Indication: HIGH DENSITY LIPOPROTEIN DECREASED
     Dosage: WITH DINNER
     Route: 048
  2. NIASPAN (COATED) [Suspect]
     Indication: LOW DENSITY LIPOPROTEIN INCREASED

REACTIONS (3)
  - Abdominal distension [Recovered/Resolved]
  - Flushing [Recovered/Resolved]
  - Blood glucose increased [Recovered/Resolved]
